FAERS Safety Report 14656928 (Version 1)
Quarter: 2018Q1

REPORT INFORMATION
  Report Type: Spontaneous
  Country: US (occurrence: US)
  Receive Date: 20180319
  Receipt Date: 20180319
  Transmission Date: 20180509
  Serious: No
  Sender: FDA-Public Use
  Company Number: US-SA-2017SA162714

PATIENT
  Age: 69 Year
  Sex: Female

DRUGS (1)
  1. NASACORT ALLERGY 24HR [Suspect]
     Active Substance: TRIAMCINOLONE ACETONIDE
     Indication: NASAL CONGESTION
     Dosage: 2 SPRAY EACH NOSTRIL
     Route: 045

REACTIONS (5)
  - Fall [Unknown]
  - Product use in unapproved indication [Unknown]
  - Drug ineffective [Unknown]
  - Vertigo [Unknown]
  - Dizziness [Unknown]
